FAERS Safety Report 25736873 (Version 1)
Quarter: 2025Q3

REPORT INFORMATION
  Report Type: Spontaneous
  Country: CL (occurrence: CL)
  Receive Date: 20250828
  Receipt Date: 20250828
  Transmission Date: 20251020
  Serious: Yes (Other)
  Sender: AMGEN
  Company Number: CL-002147023-NVSC2025CL133689

PATIENT
  Sex: Female

DRUGS (1)
  1. ERENUMAB [Suspect]
     Active Substance: ERENUMAB
     Indication: Migraine
     Dosage: UNK UNK, 140, QMO (APPROXIMATELY 11 MONTHS)
     Route: 065

REACTIONS (3)
  - Pericarditis [Unknown]
  - Pericardial effusion [Unknown]
  - Product storage error [Unknown]
